FAERS Safety Report 13249626 (Version 1)
Quarter: 2017Q1

REPORT INFORMATION
  Report Type: Spontaneous
  Country: US (occurrence: US)
  Receive Date: 20170218
  Receipt Date: 20170218
  Transmission Date: 20170428
  Serious: No
  Sender: FDA-Public Use
  Company Number: US-ALLERGAN-1670639US

PATIENT
  Age: 65 Year
  Sex: Female

DRUGS (2)
  1. REFRESH PLUS [Concomitant]
     Active Substance: CARBOXYMETHYLCELLULOSE SODIUM
     Indication: DRY EYE
     Dosage: UNK
     Route: 047
  2. RESTASIS [Suspect]
     Active Substance: CYCLOSPORINE
     Indication: DRY EYE
     Dosage: 1 GTT, BID
     Route: 047
     Dates: start: 201605, end: 20160923

REACTIONS (7)
  - Eye pruritus [Recovered/Resolved]
  - Vision blurred [Recovered/Resolved]
  - Foreign body sensation in eyes [Recovered/Resolved]
  - Ocular discomfort [Recovered/Resolved]
  - Dry eye [Recovered/Resolved]
  - Ocular hyperaemia [Recovered/Resolved]
  - Eye pain [Recovered/Resolved]

NARRATIVE: CASE EVENT DATE: 201605
